FAERS Safety Report 8379569-0 (Version None)
Quarter: 2012Q2

REPORT INFORMATION
  Report Type: 
  Country: None (occurrence: None)
  Receive Date: 20120523
  Receipt Date: 20120510
  Transmission Date: 20120825
  Serious: Yes (Other)
  Sender: FDA-Public Use
  Company Number: GB-JNJFOC-20120305555

PATIENT
  Age: 26 Year
  Sex: Male

DRUGS (3)
  1. DIAZEPAM [Concomitant]
     Indication: PRODUCT USED FOR UNKNOWN INDICATION
     Route: 065
  2. LOPERAMIDE [Concomitant]
     Indication: PRODUCT USED FOR UNKNOWN INDICATION
     Route: 065
  3. RISPERDAL [Suspect]
     Indication: ABNORMAL BEHAVIOUR
     Route: 048
     Dates: start: 20111001, end: 20111201

REACTIONS (3)
  - VITAMIN B12 DEFICIENCY [None]
  - PERNICIOUS ANAEMIA [None]
  - AUTOIMMUNE DISORDER [None]
